FAERS Safety Report 6133913-3 (Version None)
Quarter: 2009Q1

REPORT INFORMATION
  Report Type: 
  Country: None (occurrence: None)
  Receive Date: 20090326
  Receipt Date: 20090318
  Transmission Date: 20090719
  Serious: Yes (Hospitalization)
  Sender: FDA-Public Use
  Company Number: DE-ASTRAZENECA-2009PK00818

PATIENT
  Age: 53 Year
  Sex: Female
  Weight: 70 kg

DRUGS (6)
  1. SEROQUEL [Suspect]
     Indication: DEMENTIA ALZHEIMER'S TYPE
     Dosage: 50-300 MG DAILY
     Route: 048
     Dates: start: 20090207
  2. SEROQUEL [Suspect]
     Dosage: 50-300 MG DAILY
     Route: 048
     Dates: start: 20090211
  3. RISPERDAL [Concomitant]
     Route: 048
     Dates: start: 20090207, end: 20090217
  4. ARICEPT [Concomitant]
     Route: 048
  5. AXURA [Concomitant]
  6. TAVOR [Concomitant]

REACTIONS (1)
  - CIRCULATORY COLLAPSE [None]
